FAERS Safety Report 8428881 (Version 2)
Quarter: 2013Q3

REPORT INFORMATION
  Report Type: Spontaneous
  Country: US (occurrence: US)
  Receive Date: 20120227
  Receipt Date: 20130813
  Transmission Date: 20140515
  Serious: Yes (Hospitalization)
  Sender: FDA-Public Use
  Company Number: US-GLAXOSMITHKLINE-A0903052A

PATIENT
  Age: 85 Year
  Sex: Female
  Weight: 69.1 kg

DRUGS (6)
  1. AVANDIA [Suspect]
     Indication: DIABETES MELLITUS
     Dosage: 4MG PER DAY
     Route: 048
     Dates: start: 20060424, end: 20100419
  2. GLIMEPIRIDE [Concomitant]
  3. FLEXERIL [Concomitant]
  4. SIMVASTATIN [Concomitant]
  5. LORAZEPAM [Concomitant]
  6. COZAAR [Concomitant]

REACTIONS (7)
  - Acute myocardial infarction [Unknown]
  - Acute coronary syndrome [Unknown]
  - Acute pulmonary oedema [Unknown]
  - Coronary artery disease [Unknown]
  - Ischaemic cardiomyopathy [Unknown]
  - Spinal compression fracture [Unknown]
  - Cardiac failure congestive [Unknown]
